FAERS Safety Report 10718114 (Version 1)
Quarter: 2015Q1

REPORT INFORMATION
  Report Type: Spontaneous
  Country: CN (occurrence: CN)
  Receive Date: 20150117
  Receipt Date: 20150117
  Transmission Date: 20150721
  Serious: Yes (Hospitalization)
  Sender: FDA-Public Use
  Company Number: PHHY2015CN004940

PATIENT
  Age: 42 Year
  Sex: Male
  Weight: 53 kg

DRUGS (2)
  1. TEGRETOL [Suspect]
     Active Substance: CARBAMAZEPINE
     Dosage: 1 DF, BID
     Route: 048
     Dates: end: 20140725
  2. TEGRETOL [Suspect]
     Active Substance: CARBAMAZEPINE
     Indication: EPILEPSY
     Dosage: 0.5 DF, QD
     Route: 048
     Dates: start: 20140719

REACTIONS (4)
  - Erythema [Recovering/Resolving]
  - Oral mucosa erosion [Recovering/Resolving]
  - Conjunctival disorder [Recovering/Resolving]
  - Skin lesion [Recovering/Resolving]

NARRATIVE: CASE EVENT DATE: 20140816
